FAERS Safety Report 15724107 (Version 1)
Quarter: 2018Q4

REPORT INFORMATION
  Report Type: Spontaneous
  Country: CL (occurrence: CL)
  Receive Date: 20181214
  Receipt Date: 20181214
  Transmission Date: 20190205
  Serious: Yes (Hospitalization, Other)
  Sender: FDA-Public Use
  Company Number: CL-009507513-1811CHL007471

PATIENT
  Age: 58 Year
  Sex: Male

DRUGS (5)
  1. LANTUS [Concomitant]
     Active Substance: INSULIN GLARGINE
     Indication: TYPE 2 DIABETES MELLITUS
     Dosage: 16 INTERNATIONAL UNIT, QD
     Route: 058
     Dates: start: 2016
  2. ROSUVASTATINE [Concomitant]
     Active Substance: ROSUVASTATIN
     Indication: TYPE 2 DIABETES MELLITUS
     Dosage: 10 MILLIGRAM
     Route: 048
     Dates: start: 2015
  3. JANUMET [Suspect]
     Active Substance: METFORMIN HYDROCHLORIDE\SITAGLIPTIN PHOSPHATE
     Indication: DIABETES MELLITUS
     Dosage: 50/1000MG, BID
     Route: 048
     Dates: start: 2017, end: 20181115
  4. EMPAGLIFLOZIN [Concomitant]
     Active Substance: EMPAGLIFLOZIN
     Dosage: 12.5 MG/DAY
     Route: 048
     Dates: start: 2017
  5. JARDIANCE [Concomitant]
     Active Substance: EMPAGLIFLOZIN
     Dosage: 25MG ?

REACTIONS (10)
  - Pancreatitis acute [Recovering/Resolving]
  - Dysbacteriosis [Unknown]
  - Weight decreased [Unknown]
  - Diverticulum [Unknown]
  - Surgery [Unknown]
  - Cholestasis [Unknown]
  - Gastrooesophageal reflux disease [Unknown]
  - Discomfort [Unknown]
  - Pleural effusion [Unknown]
  - Helicobacter infection [Unknown]

NARRATIVE: CASE EVENT DATE: 2018
